FAERS Safety Report 4300302-3 (Version None)
Quarter: 2004Q1

REPORT INFORMATION
  Report Type: 
  Country: None (occurrence: None)
  Receive Date: 20040218
  Receipt Date: 20040203
  Transmission Date: 20041129
  Serious: Yes (Hospitalization)
  Sender: FDA-Public Use
  Company Number: 2002IM000393

PATIENT
  Age: 50 Year
  Sex: Male
  Weight: 101 kg

DRUGS (15)
  1. INTERFERON GAMMA-1B [Suspect]
     Indication: HEPATITIS C
     Dosage: 100 UG;TIW, SUBCUTANEOUS
     Route: 058
     Dates: start: 20020305, end: 20020611
  2. DEMEROL [Suspect]
     Indication: ABDOMINAL PAIN UPPER
     Dates: start: 20010101, end: 20020611
  3. XANAX [Suspect]
     Indication: ANXIETY
     Dates: start: 19990101, end: 20020611
  4. PROZAC [Suspect]
     Indication: DEPRESSION
     Dates: start: 20000101
  5. PRILOSEC [Concomitant]
  6. SPIRONOLACTONE [Concomitant]
  7. LASIX [Concomitant]
  8. PROPRANOLOL [Concomitant]
  9. IBUPROFEN [Concomitant]
  10. ROBITUSSIN AC [Concomitant]
  11. ZITHROMAX [Concomitant]
  12. VACTROBAN OINTMENT 2% [Concomitant]
  13. GLY-OXIDE MOUTHWASH [Concomitant]
  14. MILK THISTLE [Concomitant]
  15. LEVSIN PB [Suspect]
     Indication: ABDOMINAL PAIN
     Dates: start: 20020101, end: 20020611

REACTIONS (25)
  - AGITATION [None]
  - AMMONIA INCREASED [None]
  - ANXIETY [None]
  - CONFUSIONAL STATE [None]
  - DELIRIUM [None]
  - DIABETES MELLITUS [None]
  - DRUG WITHDRAWAL SYNDROME [None]
  - GASTRITIS [None]
  - HAEMATEMESIS [None]
  - HEPATIC ENCEPHALOPATHY [None]
  - HYPERTENSION [None]
  - INSOMNIA [None]
  - JAUNDICE [None]
  - LEUKAEMOID REACTION [None]
  - LEUKOCYTOSIS [None]
  - LOOSE STOOLS [None]
  - MENTAL STATUS CHANGES [None]
  - METABOLIC DISORDER [None]
  - PAIN IN EXTREMITY [None]
  - POLLAKIURIA [None]
  - SELF-MEDICATION [None]
  - STRESS SYMPTOMS [None]
  - UPPER GASTROINTESTINAL HAEMORRHAGE [None]
  - VARICOSE VEIN [None]
  - WEIGHT DECREASED [None]
